FAERS Safety Report 20438274 (Version 2)
Quarter: 2022Q1

REPORT INFORMATION
  Report Type: Spontaneous
  Country: US (occurrence: US)
  Receive Date: 20220207
  Receipt Date: 20220314
  Transmission Date: 20220424
  Serious: No
  Sender: FDA-Public Use
  Company Number: US-NOVARTISTESTPH-NVSC2022US026452

PATIENT
  Sex: Female

DRUGS (1)
  1. PIQRAY [Suspect]
     Active Substance: ALPELISIB
     Indication: Breast cancer
     Dosage: UNK
     Route: 048

REACTIONS (6)
  - Liver disorder [Unknown]
  - Renal disorder [Unknown]
  - Rash [Unknown]
  - Stomatitis [Unknown]
  - Oedema peripheral [Unknown]
  - Dysgeusia [Unknown]
